FAERS Safety Report 5039048-5 (Version None)
Quarter: 2006Q2

REPORT INFORMATION
  Report Type: 
  Country: None (occurrence: None)
  Receive Date: 20060627
  Receipt Date: 20060627
  Transmission Date: 20061013
  Serious: Yes (Hospitalization)
  Sender: FDA-Public Use
  Company Number: None

PATIENT
  Age: 67 Year
  Sex: Male

DRUGS (1)
  1. HEPARIN [Suspect]
     Indication: PROPHYLAXIS

REACTIONS (3)
  - HEPARIN-INDUCED THROMBOCYTOPENIA TEST [None]
  - THROMBOCYTOPENIA [None]
  - TOE AMPUTATION [None]
